FAERS Safety Report 12650076 (Version 2)
Quarter: 2016Q3

REPORT INFORMATION
  Report Type: Report from Study
  Country: CH (occurrence: CH)
  Receive Date: 20160813
  Receipt Date: 20160818
  Transmission Date: 20161109
  Serious: Yes (Hospitalization)
  Sender: FDA-Public Use
  Company Number: CH-AMGEN-CHECT2016103513

PATIENT

DRUGS (3)
  1. PEMETREXED [Concomitant]
     Active Substance: PEMETREXED
     Indication: NON-SMALL CELL LUNG CANCER
  2. DENOSUMAB [Suspect]
     Active Substance: DENOSUMAB
     Indication: NON-SMALL CELL LUNG CANCER
     Route: 065
  3. CARBOPLATIN. [Concomitant]
     Active Substance: CARBOPLATIN
     Indication: NON-SMALL CELL LUNG CANCER

REACTIONS (1)
  - Joint dislocation [Recovered/Resolved]

NARRATIVE: CASE EVENT DATE: 20160116
